FAERS Safety Report 17524495 (Version 3)
Quarter: 2020Q2

REPORT INFORMATION
  Report Type: Report from Study
  Country: BR (occurrence: BR)
  Receive Date: 20200311
  Receipt Date: 20200527
  Transmission Date: 20200713
  Serious: Yes (Hospitalization)
  Sender: FDA-Public Use
  Company Number: BR-BIOGEN-2020BI00847058

PATIENT
  Sex: Female

DRUGS (5)
  1. PURAN [Concomitant]
     Active Substance: LEVOTHYROXINE SODIUM
     Indication: HYPOTHYROIDISM
     Route: 065
  2. DUOVENT [Concomitant]
     Active Substance: FENOTEROL HYDROBROMIDE
     Indication: ASTHMA
     Route: 065
  3. TYSABRI [Suspect]
     Active Substance: NATALIZUMAB
     Route: 042
     Dates: start: 2013, end: 201811
  4. BEROTEC [Concomitant]
     Active Substance: FENOTEROL HYDROBROMIDE
     Indication: ASTHMA
     Route: 065
  5. TYSABRI [Suspect]
     Active Substance: NATALIZUMAB
     Indication: MULTIPLE SCLEROSIS
     Route: 042
     Dates: start: 2013, end: 201810

REACTIONS (3)
  - Drug hypersensitivity [Recovered/Resolved with Sequelae]
  - Eosinophilia [Not Recovered/Not Resolved]
  - Pneumonia [Recovered/Resolved]

NARRATIVE: CASE EVENT DATE: 2018
